FAERS Safety Report 7236543-5 (Version None)
Quarter: 2011Q1

REPORT INFORMATION
  Report Type: 
  Country: None (occurrence: None)
  Receive Date: 20110112
  Receipt Date: 20101227
  Transmission Date: 20110831
  Serious: Yes (Death, Hospitalization)
  Sender: FDA-Public Use
  Company Number: 2010BI034374

PATIENT
  Age: 72 Year
  Sex: Female
  Weight: 43 kg

DRUGS (16)
  1. ZEVALIN [Suspect]
     Indication: FOLLICLE CENTRE LYMPHOMA, FOLLICULAR GRADE I, II, III STAGE IV
     Dosage: 477 MBQ; 1X; IVDRP
     Route: 041
     Dates: start: 20100309, end: 20100316
  2. LOXONIN [Concomitant]
  3. NAUZELIN [Concomitant]
  4. CLADRIBINE [Concomitant]
  5. URSO 250 [Concomitant]
  6. FLUDARABINE PHOSPHATE [Concomitant]
  7. RITUXIMAB [Concomitant]
  8. RITUXIMAB [Concomitant]
  9. CRAVIT [Concomitant]
  10. POLARAMINE [Concomitant]
  11. PANCREAZE [Concomitant]
  12. FLUDARABINE PHOSPHATE [Concomitant]
  13. ROHYPNOL [Concomitant]
  14. PARIET [Concomitant]
  15. GASMOTIN [Concomitant]
  16. FLUDEOXYGLUCOSE [Concomitant]

REACTIONS (7)
  - NAUSEA [None]
  - HEPATIC FAILURE [None]
  - PLEURAL EFFUSION [None]
  - ASCITES [None]
  - WHITE BLOOD CELL COUNT DECREASED [None]
  - PLATELET COUNT DECREASED [None]
  - COUGH [None]
